FAERS Safety Report 9180153 (Version 3)
Quarter: 2013Q2

REPORT INFORMATION
  Report Type: Report from Study
  Country: AU (occurrence: AU)
  Receive Date: 20130321
  Receipt Date: 20130520
  Transmission Date: 20140414
  Serious: Yes (Other)
  Sender: FDA-Public Use
  Company Number: PHHY2011AU117904

PATIENT
  Sex: Male

DRUGS (19)
  1. EXJADE [Suspect]
     Indication: IRON OVERLOAD
     Dosage: 3000 MG, BID
     Route: 048
     Dates: start: 20070101
  2. EXJADE [Suspect]
     Dosage: 3000 MG, DAILY
     Route: 048
  3. SYMBICORT [Concomitant]
     Dosage: 2 PUFFS, BID
  4. CALTRATE [Concomitant]
     Dosage: 1 DAILY
  5. SPIRIVA [Concomitant]
     Dosage: 18 UG, DAILY
  6. SALBUTAMOL [Concomitant]
     Dosage: 2 PUFFS, BID
  7. SOMAC [Concomitant]
     Dosage: 40 MG MANE
  8. EFEXOR [Concomitant]
     Dosage: 225 MG, UNK
  9. LIPITOR [Concomitant]
     Dosage: 40 MG, UNK
  10. NOVORAPID [Concomitant]
     Dosage: 6 UNITS AM, 8 UNITS MID DAY AND 10 UNITS PM
  11. LANTUS [Concomitant]
     Dosage: 64 UNITS NOCTE
  12. COLOXYL [Concomitant]
     Dosage: UNK UKN, BID
  13. SENNA [Concomitant]
     Dosage: UNK UKN, BID
  14. SPIRONOLACTONE [Concomitant]
     Dosage: 25 MG, UNK
  15. TESTOSTERONE [Concomitant]
     Dosage: 1000 MG, ONCE SIX WEEKLY
     Route: 030
  16. BECONASE [Concomitant]
     Dosage: UNK UKN, UNK
  17. OSTELIN [Concomitant]
     Dosage: 1 DAILY, UNK
  18. TRAMADOL [Concomitant]
     Dosage: 100 MG, BID
  19. OXYCODONE [Concomitant]
     Dosage: 5 MG, 1-2 4 HOURLY

REACTIONS (13)
  - Diabetes mellitus [Recovered/Resolved]
  - Cerebrovascular accident [Recovered/Resolved]
  - Haemorrhage [Recovered/Resolved]
  - Hypersomnia [Recovered/Resolved]
  - Faeces discoloured [Recovered/Resolved]
  - Weight decreased [Recovered/Resolved]
  - Cough [Recovered/Resolved]
  - Pneumonia [Recovered/Resolved]
  - Gait disturbance [Recovered/Resolved]
  - Skin discolouration [Recovered/Resolved]
  - Blood iron increased [Recovered/Resolved]
  - Vomiting [Recovered/Resolved]
  - Rash [Recovered/Resolved]
